FAERS Safety Report 24674852 (Version 9)
Quarter: 2025Q3

REPORT INFORMATION
  Report Type: Report from Study
  Country: CA (occurrence: CA)
  Receive Date: 20241128
  Receipt Date: 20250930
  Transmission Date: 20251021
  Serious: Yes (Other)
  Sender: TAKEDA
  Company Number: CA-TAKEDA-2023TUS091184

PATIENT
  Age: 55 Year
  Sex: Male

DRUGS (7)
  1. VEDOLIZUMAB [Suspect]
     Active Substance: VEDOLIZUMAB
     Indication: Colitis ulcerative
  2. VEDOLIZUMAB [Suspect]
     Active Substance: VEDOLIZUMAB
  3. VEDOLIZUMAB [Suspect]
     Active Substance: VEDOLIZUMAB
     Dosage: 300 MILLIGRAM, Q4WEEKS
     Dates: start: 20250205
  4. VEDOLIZUMAB [Suspect]
     Active Substance: VEDOLIZUMAB
     Dosage: 300 MILLIGRAM, Q4WEEKS
  5. PREDNISONE [Concomitant]
     Active Substance: PREDNISONE
  6. PENTASA [Concomitant]
     Active Substance: MESALAMINE
     Dosage: UNK UNK, QD
  7. Salofalk [Concomitant]

REACTIONS (16)
  - Colitis ulcerative [Recovering/Resolving]
  - Bladder disorder [Unknown]
  - Faeces discoloured [Unknown]
  - Viral infection [Unknown]
  - Diarrhoea [Unknown]
  - Hypersomnia [Unknown]
  - Visual impairment [Unknown]
  - Cognitive disorder [Unknown]
  - Weight decreased [Recovering/Resolving]
  - Off label use [Unknown]
  - Therapeutic reaction time decreased [Unknown]
  - Musculoskeletal stiffness [Unknown]
  - Asthenia [Recovering/Resolving]
  - Arthralgia [Unknown]
  - Back pain [Recovering/Resolving]
  - Fatigue [Unknown]

NARRATIVE: CASE EVENT DATE: 20250205
